FAERS Safety Report 16551477 (Version 5)
Quarter: 2024Q1

REPORT INFORMATION
  Report Type: Spontaneous
  Country: US (occurrence: US)
  Receive Date: 20190710
  Receipt Date: 20240215
  Transmission Date: 20240410
  Serious: Yes (Other)
  Sender: FDA-Public Use
  Company Number: US-GILEAD-2019-0417414

PATIENT
  Age: 23 Year
  Sex: Male
  Weight: 58.957 kg

DRUGS (42)
  1. VIREAD [Suspect]
     Active Substance: TENOFOVIR DISOPROXIL FUMARATE
     Indication: HIV infection
     Dosage: UNK
     Route: 048
     Dates: start: 201206, end: 201405
  2. VIREAD [Suspect]
     Active Substance: TENOFOVIR DISOPROXIL FUMARATE
     Dosage: UNK
     Route: 065
     Dates: start: 201206, end: 20160608
  3. TRUVADA [Suspect]
     Active Substance: EMTRICITABINE\TENOFOVIR DISOPROXIL FUMARATE
     Indication: HIV infection
     Dosage: UNK
     Route: 048
     Dates: start: 201406, end: 201612
  4. GENVOYA [Concomitant]
     Active Substance: COBICISTAT\ELVITEGRAVIR\EMTRICITABINE\TENOFOVIR ALAFENAMIDE FUMARATE
  5. EMTRIVA [Concomitant]
     Active Substance: EMTRICITABINE
  6. ATENOLOL [Concomitant]
     Active Substance: ATENOLOL
  7. LIPITOR [Concomitant]
     Active Substance: ATORVASTATIN CALCIUM
  8. NORVASC [Concomitant]
     Active Substance: AMLODIPINE BESYLATE
  9. CARDURA [Concomitant]
     Active Substance: DOXAZOSIN MESYLATE
  10. HYDRALAZINE [Concomitant]
     Active Substance: HYDRALAZINE HYDROCHLORIDE
  11. PREDNISONE [Concomitant]
     Active Substance: PREDNISONE
  12. PEPCID [Concomitant]
     Active Substance: FAMOTIDINE
  13. SYNTHROID [Concomitant]
     Active Substance: LEVOTHYROXINE SODIUM
  14. KEPPRA [Concomitant]
     Active Substance: LEVETIRACETAM
  15. VITAMIN B COMPLEX [Concomitant]
     Active Substance: CYANOCOBALAMIN\DEXPANTHENOL\NIACINAMIDE\PYRIDOXINE HYDROCHLORIDE\RIBOFLAVIN 5^-PHOSPHATE SODIUM\THIA
  16. TYLENOL [Concomitant]
     Active Substance: ACETAMINOPHEN
  17. AMOXICILLIN [Concomitant]
     Active Substance: AMOXICILLIN
  18. ASPIRIN [Concomitant]
     Active Substance: ASPIRIN
  19. ATORVASTATIN [Concomitant]
     Active Substance: ATORVASTATIN
  20. BACTRIM [Concomitant]
     Active Substance: SULFAMETHOXAZOLE\TRIMETHOPRIM
  21. CEFTAZIDIME [Concomitant]
     Active Substance: CEFTAZIDIME
  22. PANTOPRAZOLE [Concomitant]
     Active Substance: PANTOPRAZOLE
  23. PRAVASTATIN [Concomitant]
     Active Substance: PRAVASTATIN
  24. PREDNISOLONE [Concomitant]
     Active Substance: PREDNISOLONE
  25. VANCOMYCIN [Concomitant]
     Active Substance: VANCOMYCIN
  26. JULUCA [Concomitant]
     Active Substance: DOLUTEGRAVIR SODIUM\RILPIVIRINE HYDROCHLORIDE
  27. TIVICAY [Concomitant]
     Active Substance: DOLUTEGRAVIR SODIUM
  28. DIFLUCAN [Concomitant]
     Active Substance: FLUCONAZOLE
  29. NYSTATIN [Concomitant]
     Active Substance: NYSTATIN
  30. AVELOX [Concomitant]
     Active Substance: MOXIFLOXACIN HYDROCHLORIDE
  31. SEPTRA DS [Concomitant]
     Active Substance: SULFAMETHOXAZOLE\TRIMETHOPRIM
  32. TAMIFLU [Concomitant]
     Active Substance: OSELTAMIVIR PHOSPHATE
  33. AZITHROMYCIN [Concomitant]
     Active Substance: AZITHROMYCIN
  34. SEVELAMER [Concomitant]
     Active Substance: SEVELAMER
  35. LABETALOL [Concomitant]
     Active Substance: LABETALOL\LABETALOL HYDROCHLORIDE
  36. DAPSONE [Concomitant]
     Active Substance: DAPSONE
  37. DIOVAN [Concomitant]
     Active Substance: VALSARTAN
  38. FORTAZ [Concomitant]
     Active Substance: CEFTAZIDIME SODIUM
  39. HECTOROL [Concomitant]
     Active Substance: DOXERCALCIFEROL
  40. CLONIDINE [Concomitant]
     Active Substance: CLONIDINE
  41. CALCITRIOL [Concomitant]
     Active Substance: CALCITRIOL
  42. ASCORBIC ACID\BIOTIN\CALCIUM PANTOTHENATE\CYANOCOBALAMIN\FOLIC ACID\NI [Concomitant]
     Active Substance: ASCORBIC ACID\BIOTIN\CALCIUM PANTOTHENATE\CYANOCOBALAMIN\FOLIC ACID\NIACINAMIDE\PYRIDOXINE HYDROCHLO

REACTIONS (25)
  - End stage renal disease [Not Recovered/Not Resolved]
  - Chronic kidney disease [Not Recovered/Not Resolved]
  - Glomerulosclerosis [Unknown]
  - Kidney fibrosis [Unknown]
  - Chronic kidney disease-mineral and bone disorder [Unknown]
  - Renal failure [Unknown]
  - Acute kidney injury [Unknown]
  - Injury [Unknown]
  - Emotional distress [Unknown]
  - Anhedonia [Unknown]
  - Economic problem [Unknown]
  - Glomerular filtration rate decreased [Unknown]
  - Humerus fracture [Unknown]
  - Anaemia [Unknown]
  - Hypokinesia [Unknown]
  - Hypertension [Unknown]
  - Depression [Unknown]
  - Effusion [Unknown]
  - Joint swelling [Unknown]
  - Anxiety [Unknown]
  - Pain [Unknown]
  - Blood urea increased [Unknown]
  - Dyspnoea [Unknown]
  - Blood creatinine increased [Unknown]
  - Spinal support [Not Recovered/Not Resolved]

NARRATIVE: CASE EVENT DATE: 20140212
